FAERS Safety Report 9131366 (Version 1)
Quarter: 2013Q1

REPORT INFORMATION
  Report Type: Report from Study
  Country: US (occurrence: US)
  Receive Date: 20130301
  Receipt Date: 20130301
  Transmission Date: 20140127
  Serious: No
  Sender: FDA-Public Use
  Company Number: US-MYLANLABS-2012S1002759

PATIENT
  Age: 41 Year
  Sex: Female

DRUGS (4)
  1. AMNESTEEM CAPSULES [Suspect]
     Indication: ACNE
     Route: 048
     Dates: start: 201201
  2. LAMICTAL [Concomitant]
     Route: 048
  3. DIVALPROEX [Concomitant]
     Route: 048
  4. ZOVIA [Concomitant]
     Route: 048

REACTIONS (2)
  - Rhinitis allergic [Recovered/Resolved]
  - Upper respiratory tract infection [Unknown]
